FAERS Safety Report 5643105-X (Version None)
Quarter: 2008Q1

REPORT INFORMATION
  Report Type: 
  Country: None (occurrence: None)
  Receive Date: 20080228
  Receipt Date: 20080221
  Transmission Date: 20080703
  Serious: Yes (Hospitalization, Other)
  Sender: FDA-Public Use
  Company Number: AU-AVENTIS-200714748GDDC

PATIENT
  Age: 65 Year
  Sex: Male

DRUGS (9)
  1. LANTUS [Suspect]
     Indication: DIABETES MELLITUS
     Route: 058
  2. LANTUS [Suspect]
     Route: 058
     Dates: start: 20061101
  3. AUTOPEN INSULIN INJECTION PEN [Suspect]
  4. PLAVIX [Concomitant]
     Dosage: DOSE: UNK
  5. NORVASC                            /00972401/ [Concomitant]
     Dosage: DOSE: UNK
  6. ATENOLOL [Concomitant]
     Dosage: DOSE: UNK
  7. ZOLOFT [Concomitant]
     Dosage: DOSE: UNK
  8. METFORMIN HCL [Concomitant]
     Dosage: DOSE: UNK
  9. AVANDIA [Concomitant]
     Dosage: DOSE: UNK

REACTIONS (6)
  - BLOOD GLUCOSE INCREASED [None]
  - GANGRENE [None]
  - HYPOGLYCAEMIA [None]
  - STAPHYLOCOCCAL INFECTION [None]
  - TOE AMPUTATION [None]
  - VISION BLURRED [None]
